FAERS Safety Report 7985087-1 (Version None)
Quarter: 2011Q4

REPORT INFORMATION
  Report Type: 
  Country: None (occurrence: None)
  Receive Date: 20111216
  Receipt Date: 20111207
  Transmission Date: 20120403
  Serious: Yes (Hospitalization)
  Sender: FDA-Public Use
  Company Number: PHHY2011JP107586

PATIENT
  Age: 58 Year
  Sex: Female

DRUGS (5)
  1. CHLORPROMAZINE HYDROCHLORIDE [Concomitant]
  2. LEVOMEPROMAZINE HYDROCHLORIDE [Concomitant]
  3. CARBAMAZEPINE [Suspect]
     Route: 048
  4. BROMAZEPAM [Concomitant]
  5. FLUNITRAZEPAM [Concomitant]

REACTIONS (3)
  - PITUITARY-DEPENDENT CUSHING'S SYNDROME [None]
  - HYPERTRICHOSIS [None]
  - ANDROGENETIC ALOPECIA [None]
